FAERS Safety Report 11149119 (Version 1)
Quarter: 2015Q2

REPORT INFORMATION
  Report Type: Spontaneous
  Country: US (occurrence: US)
  Receive Date: 20150529
  Receipt Date: 20150529
  Transmission Date: 20150821
  Serious: No
  Sender: FDA-Public Use
  Company Number: US-PFIZER INC-2015178666

PATIENT
  Age: 73 Year
  Sex: Female
  Weight: 48 kg

DRUGS (3)
  1. EFFEXOR XR [Suspect]
     Active Substance: VENLAFAXINE HYDROCHLORIDE
     Dosage: 75 MG, 3X/DAY
     Dates: start: 20150522
  2. RIBOFLAVIN [Suspect]
     Active Substance: RIBOFLAVIN
     Indication: HEPATITIS C
     Dosage: UNK
  3. RIBOFLAVIN [Suspect]
     Active Substance: RIBOFLAVIN
     Indication: LIVER DISORDER

REACTIONS (9)
  - Decreased appetite [Unknown]
  - Hypersomnia [Unknown]
  - Nausea [Unknown]
  - Malaise [Unknown]
  - Blood glucose decreased [Unknown]
  - Somnolence [Unknown]
  - Asthenia [Unknown]
  - Fall [Unknown]
  - Dizziness [Unknown]

NARRATIVE: CASE EVENT DATE: 201505
